FAERS Safety Report 5604444-1 (Version None)
Quarter: 2008Q1

REPORT INFORMATION
  Report Type: 
  Country: None (occurrence: None)
  Receive Date: 20080123
  Receipt Date: 20080123
  Transmission Date: 20080703
  Serious: Yes (Life-Threatening)
  Sender: FDA-Public Use
  Company Number: None

PATIENT
  Age: 45 Year
  Sex: Female
  Weight: 107.5025 kg

DRUGS (14)
  1. CHANTIX [Suspect]
     Indication: SMOKING CESSATION THERAPY
     Dosage: 0.5MG QDX3DAYS,BIDX4DAYS PO  : 1MG BID X 11 WEEKS PO
     Route: 048
     Dates: start: 20071023, end: 20071113
  2. PREMARIN [Concomitant]
  3. ASPIRIN [Concomitant]
  4. DYAZIDE [Concomitant]
  5. VICODIN [Concomitant]
  6. PRILOSEC [Concomitant]
  7. LORATADINE [Concomitant]
  8. FLUOXETINE [Concomitant]
  9. TOPAMAX [Concomitant]
  10. BUSPAR [Concomitant]
  11. KLONOPIN [Concomitant]
  12. ONE-A-DAY WEIGHT SMART VITAMIN [Concomitant]
  13. SIMVASTATIN [Concomitant]
  14. AUGMENTIN '250' [Concomitant]

REACTIONS (2)
  - FEELING ABNORMAL [None]
  - SUICIDAL IDEATION [None]
